FAERS Safety Report 4753849-X (Version None)
Quarter: 2005Q3

REPORT INFORMATION
  Report Type: 
  Country: None (occurrence: None)
  Receive Date: 20050826
  Receipt Date: 20010718
  Transmission Date: 20060218
  Serious: Yes (Hospitalization)
  Sender: FDA-Public Use
  Company Number: FR-GLAXOSMITHKLINE-B0114947A

PATIENT
  Age: 1 Day
  Sex: Female
  Weight: 3.7 kg

DRUGS (7)
  1. ZIDOVUDINE [Suspect]
     Indication: ANTIVIRAL PROPHYLAXIS
     Route: 048
     Dates: start: 20000808, end: 20000921
  2. ZIDOVUDINE [Suspect]
     Indication: HIV INFECTION
     Dates: start: 20000808, end: 20000808
  3. ZIDOVUDINE [Suspect]
     Dosage: 250MG TWICE PER DAY
     Dates: start: 20000606, end: 20000808
  4. IRON [Concomitant]
  5. LOMEXIN [Concomitant]
  6. MAGNE B6 [Concomitant]
  7. FOLIC ACID [Concomitant]

REACTIONS (16)
  - ANAEMIA [None]
  - ANAEMIA NEONATAL [None]
  - AREFLEXIA [None]
  - BLOOD KETONE BODY INCREASED [None]
  - BLOOD KETONE BODY PRESENT [None]
  - BLOOD LACTIC ACID INCREASED [None]
  - BLOOD PYRUVIC ACID DECREASED [None]
  - DRUG EXPOSURE DURING PREGNANCY [None]
  - HYPERTRIGLYCERIDAEMIA [None]
  - HYPOTONIA [None]
  - HYPOTONIA NEONATAL [None]
  - LABORATORY TEST ABNORMAL [None]
  - LACTATE PYRUVATE RATIO INCREASED [None]
  - MASTITIS [None]
  - METABOLIC DISORDER [None]
  - NEUTROPENIA [None]
